FAERS Safety Report 8545916-X (Version None)
Quarter: 2012Q3

REPORT INFORMATION
  Report Type: 
  Country: None (occurrence: None)
  Receive Date: 20120727
  Receipt Date: 20111121
  Transmission Date: 20120928
  Serious: No
  Sender: FDA-Public Use
  Company Number: US-ASTRAZENECA-2011SE70827

PATIENT
  Age: 50 Year
  Sex: Male
  Weight: 90.7 kg

DRUGS (8)
  1. SEROQUEL XR [Suspect]
     Route: 048
  2. SEROQUEL XR [Suspect]
     Route: 048
  3. SAVELLA [Concomitant]
     Indication: FIBROMYALGIA
     Route: 065
  4. SEROQUEL XR [Suspect]
     Indication: INSOMNIA
     Route: 048
     Dates: start: 20110901
  5. SEROQUEL XR [Suspect]
     Indication: DEPRESSION
     Route: 048
     Dates: start: 20110901
  6. VITAMIN TAB [Concomitant]
     Route: 065
  7. SAVELLA [Concomitant]
     Route: 065
  8. SAVELLA [Concomitant]
     Route: 065

REACTIONS (6)
  - WRONG TECHNIQUE IN DRUG USAGE PROCESS [None]
  - SOMNOLENCE [None]
  - DIZZINESS [None]
  - PAIN [None]
  - DRUG DOSE OMISSION [None]
  - OFF LABEL USE [None]
